FAERS Safety Report 12137960 (Version 2)
Quarter: 2016Q1

REPORT INFORMATION
  Report Type: Spontaneous
  Country: US (occurrence: US)
  Receive Date: 20160302
  Receipt Date: 20160309
  Transmission Date: 20160526
  Serious: No
  Sender: FDA-Public Use
  Company Number: US-HORIZON-RAV-0040-2016

PATIENT
  Age: 8 Year
  Sex: Male

DRUGS (3)
  1. CYCLINEX 2 [Concomitant]
     Indication: ARGINASE DEFICIENCY
  2. RAVICTI [Suspect]
     Active Substance: GLYCEROL PHENYLBUTYRATE
     Indication: ARGINASE DEFICIENCY
     Dosage: 2.5 ML THREE TIMES DAILY
     Dates: start: 20150107
  3. LEVOCARNITINE. [Concomitant]
     Active Substance: LEVOCARNITINE
     Indication: ARGINASE DEFICIENCY

REACTIONS (3)
  - Epistaxis [Recovered/Resolved]
  - Nasal discomfort [Unknown]
  - Fall [Unknown]
